FAERS Safety Report 10163132 (Version 2)
Quarter: 2014Q4

REPORT INFORMATION
  Report Type: Report from Study
  Country: US (occurrence: US)
  Receive Date: 20140509
  Receipt Date: 20141015
  Transmission Date: 20150528
  Serious: Yes (Hospitalization, Disabling)
  Sender: FDA-Public Use
  Company Number: PHEH2014US009057

PATIENT
  Age: 63 Year
  Sex: Male
  Weight: 75.74 kg

DRUGS (2)
  1. SIGNIFOR [Suspect]
     Active Substance: PASIREOTIDE
     Indication: PITUITARY TUMOUR BENIGN
     Dosage: 600 UG, BID
     Route: 058
     Dates: start: 20140115
  2. SIGNIFOR [Suspect]
     Active Substance: PASIREOTIDE
     Indication: OFF LABEL USE

REACTIONS (2)
  - Ischaemic stroke [Recovered/Resolved]
  - Asthenia [Not Recovered/Not Resolved]

NARRATIVE: CASE EVENT DATE: 20140315
